FAERS Safety Report 18840770 (Version 2)
Quarter: 2021Q1

REPORT INFORMATION
  Report Type: Spontaneous
  Country: TR (occurrence: TR)
  Receive Date: 20210203
  Receipt Date: 20210317
  Transmission Date: 20210419
  Serious: No
  Sender: FDA-Public Use
  Company Number: TR-ELI_LILLY_AND_COMPANY-TR202101010162

PATIENT
  Sex: Female

DRUGS (1)
  1. COPELLOR [Suspect]
     Active Substance: IXEKIZUMAB
     Indication: PSORIASIS
     Dosage: UNK UNK, SINGLE (INDUCTION DOSE)
     Route: 065

REACTIONS (2)
  - Syncope [Recovered/Resolved]
  - Injection site pain [Unknown]
